FAERS Safety Report 22310209 (Version 2)
Quarter: 2023Q2

REPORT INFORMATION
  Report Type: Spontaneous
  Country: CN (occurrence: CN)
  Receive Date: 20230511
  Receipt Date: 20230515
  Transmission Date: 20230721
  Serious: Yes (Disabling, Other)
  Sender: FDA-Public Use
  Company Number: CN-PFIZER INC-PV202300081913

PATIENT
  Age: 85 Year
  Sex: Male

DRUGS (1)
  1. PAXLOVID [Suspect]
     Active Substance: NIRMATRELVIR\RITONAVIR
     Indication: COVID-19
     Dosage: CRUSHED + 20ML SUSPENSION AND RITONAVIR TABLETS 1 TABLET + 20ML SUSPENSION Q12 HR VIA NASAL FEEDING
     Dates: start: 20230113, end: 20230118

REACTIONS (5)
  - Renal impairment [Recovering/Resolving]
  - Intentional product use issue [Unknown]
  - Intentional product use issue [Unknown]
  - Intentional product misuse [Unknown]
  - Wrong technique in product usage process [Unknown]

NARRATIVE: CASE EVENT DATE: 20230113
